FAERS Safety Report 5467328-8 (Version None)
Quarter: 2007Q3

REPORT INFORMATION
  Report Type: 
  Country: None (occurrence: None)
  Receive Date: 20070925
  Receipt Date: 20070913
  Transmission Date: 20080115
  Serious: Yes (Other)
  Sender: FDA-Public Use
  Company Number: US-PFIZER INC-2005164316

PATIENT
  Sex: Female
  Weight: 49.9 kg

DRUGS (9)
  1. NEURONTIN [Suspect]
     Indication: FIBROMYALGIA
  2. NEURONTIN [Suspect]
     Indication: MIGRAINE
  3. NEURONTIN [Suspect]
     Indication: BACK DISORDER
  4. MOBIC [Suspect]
     Dates: start: 20070831
  5. ALEVE [Suspect]
  6. ZOVIRAX [Concomitant]
  7. ALL OTHER THERAPEUTIC PRODUCTS [Concomitant]
  8. MAXALT-MLT [Concomitant]
  9. VALIUM [Concomitant]

REACTIONS (14)
  - AGEUSIA [None]
  - BACK DISORDER [None]
  - CHEST DISCOMFORT [None]
  - DRUG INEFFECTIVE [None]
  - DURAL TEAR [None]
  - DYSPNOEA [None]
  - FEELING ABNORMAL [None]
  - HEADACHE [None]
  - HYPOAESTHESIA ORAL [None]
  - INSOMNIA [None]
  - JOINT STIFFNESS [None]
  - MUSCLE TIGHTNESS [None]
  - NERVOUSNESS [None]
  - PAIN [None]
